FAERS Safety Report 9317682 (Version 1)
Quarter: 2013Q2

REPORT INFORMATION
  Report Type: Spontaneous
  Country: US (occurrence: US)
  Receive Date: 20130530
  Receipt Date: 20130530
  Transmission Date: 20140414
  Serious: No
  Sender: FDA-Public Use
  Company Number: US-GLAXOSMITHKLINE-A0976817A

PATIENT
  Age: 68 Year
  Sex: Male

DRUGS (6)
  1. VENTOLIN [Suspect]
     Indication: ASTHMA
     Dosage: 1PUFF THREE TIMES PER DAY
     Route: 055
     Dates: start: 1990
  2. ZITHROMAX [Concomitant]
  3. NEBULIZER [Concomitant]
  4. AMBIEN CR [Concomitant]
  5. TYLENOL [Concomitant]
  6. ALEVE [Concomitant]

REACTIONS (5)
  - Lung infection [Recovering/Resolving]
  - Cough [Unknown]
  - Wheezing [Unknown]
  - Dyspnoea [Unknown]
  - Product quality issue [Unknown]
